FAERS Safety Report 7698962-2 (Version None)
Quarter: 2011Q3

REPORT INFORMATION
  Report Type: 
  Country: None (occurrence: None)
  Receive Date: 20110819
  Receipt Date: 20110810
  Transmission Date: 20111222
  Serious: Yes (Other)
  Sender: FDA-Public Use
  Company Number: GB-ELI_LILLY_AND_COMPANY-GB201103004516

PATIENT
  Sex: Male
  Weight: 143 kg

DRUGS (3)
  1. BYETTA [Suspect]
     Indication: DIABETES MELLITUS
     Dosage: 10 UG, UNK
     Route: 058
     Dates: start: 20101101, end: 20101201
  2. CANDESARTAN CILEXETIL [Concomitant]
     Dosage: 4 MG, UNKNOWN
     Route: 048
  3. FUROSEMIDE [Concomitant]
     Dosage: 60 MG, UNKNOWN
     Route: 048

REACTIONS (2)
  - DIARRHOEA [None]
  - RENAL IMPAIRMENT [None]
